FAERS Safety Report 5148610-0 (Version None)
Quarter: 2006Q4

REPORT INFORMATION
  Report Type: 
  Country: None (occurrence: None)
  Receive Date: 20061107
  Receipt Date: 20061023
  Transmission Date: 20070319
  Serious: Yes (Other)
  Sender: FDA-Public Use
  Company Number: US018627

PATIENT
  Age: 46 Year
  Sex: Female

DRUGS (2)
  1. ARSENIC TRIOXIDE [Suspect]
     Indication: ACUTE PROMYELOCYTIC LEUKAEMIA
     Dosage: 10 MG QD INTRAVENOUS DRIP
     Route: 041
  2. ARSENIC TRIOXIDE [Suspect]
     Indication: ACUTE PROMYELOCYTIC LEUKAEMIA
     Dosage: 5 MG QD INTRAVENOUS DRIP
     Route: 041

REACTIONS (5)
  - HYPERHIDROSIS [None]
  - NEUROTOXICITY [None]
  - RASH VESICULAR [None]
  - VITAMIN B1 DECREASED [None]
  - WERNICKE'S ENCEPHALOPATHY [None]
